FAERS Safety Report 11485941 (Version 1)
Quarter: 2015Q3

REPORT INFORMATION
  Report Type: Spontaneous
  Country: US (occurrence: US)
  Receive Date: 20150910
  Receipt Date: 20150910
  Transmission Date: 20151125
  Serious: Yes (Other)
  Sender: FDA-Public Use
  Company Number: US-ROCHE-1632322

PATIENT
  Sex: Female

DRUGS (1)
  1. XOLAIR [Suspect]
     Active Substance: OMALIZUMAB
     Indication: ASTHMA
     Dosage: 125 MG (1 ML) AT 3 SUBCUTANEOUS SITES, FORM STRENGTH: 150 MG/1.2 ML VIAL
     Route: 058
     Dates: start: 20100706

REACTIONS (1)
  - Herpes zoster [Unknown]
